FAERS Safety Report 17499789 (Version 4)
Quarter: 2020Q4

REPORT INFORMATION
  Report Type: Report from Study
  Country: None (occurrence: US)
  Receive Date: 20200304
  Receipt Date: 20201012
  Transmission Date: 20210113
  Serious: Yes (Hospitalization, Other)
  Sender: FDA-Public Use
  Company Number: US-ABBVIE-20K-163-3299526-00

PATIENT
  Age: 65 Year
  Sex: Female
  Weight: 67.19 kg

DRUGS (5)
  1. LOMOTIL [Concomitant]
     Active Substance: ATROPINE SULFATE\DIPHENOXYLATE HYDROCHLORIDE
     Indication: PRODUCT USED FOR UNKNOWN INDICATION
  2. HUMIRA [Suspect]
     Active Substance: ADALIMUMAB
     Indication: CROHN^S DISEASE
     Route: 058
     Dates: start: 201904, end: 202007
  3. HUMIRA [Suspect]
     Active Substance: ADALIMUMAB
     Route: 058
     Dates: start: 202007
  4. PREDNISONE. [Concomitant]
     Active Substance: PREDNISONE
     Indication: MOVEMENT DISORDER
  5. DIPHENOXYLATE/ATROPINE [Concomitant]
     Active Substance: ATROPINE\DIPHENOXYLATE
     Indication: PRODUCT USED FOR UNKNOWN INDICATION
     Dosage: 2.5-0.025

REACTIONS (11)
  - Colostomy [Unknown]
  - Blood sodium decreased [Unknown]
  - Renal failure [Recovered/Resolved]
  - Blood magnesium decreased [Unknown]
  - Crohn^s disease [Recovering/Resolving]
  - Blood potassium decreased [Unknown]
  - Blood iron decreased [Unknown]
  - Dehydration [Recovering/Resolving]
  - Red blood cell count decreased [Recovering/Resolving]
  - Stoma site haemorrhage [Unknown]
  - Stoma site discharge [Unknown]

NARRATIVE: CASE EVENT DATE: 202001
